FAERS Safety Report 5267031-3 (Version None)
Quarter: 2007Q1

REPORT INFORMATION
  Report Type: 
  Country: None (occurrence: None)
  Receive Date: 20070313
  Receipt Date: 20070302
  Transmission Date: 20070707
  Serious: Yes (Hospitalization)
  Sender: FDA-Public Use
  Company Number: 231663K07USA

PATIENT
  Age: 60 Year
  Sex: Female

DRUGS (3)
  1. REBIF [Suspect]
     Indication: MULTIPLE SCLEROSIS
     Dosage: 44 MCG, 3 IN 1 WEEKS, SUBCUTANEOUS
     Route: 058
     Dates: start: 20050512, end: 20070201
  2. AMOXICILLIN (AMOXICILLIN /00249601/) [Suspect]
     Dates: end: 20070201
  3. ETODOLAC [Suspect]
     Dates: end: 20070201

REACTIONS (2)
  - CHILLS [None]
  - DRUG HYPERSENSITIVITY [None]
